FAERS Safety Report 5103392-3 (Version None)
Quarter: 2006Q3

REPORT INFORMATION
  Report Type: 
  Country: None (occurrence: None)
  Receive Date: 20060913
  Receipt Date: 20060807
  Transmission Date: 20061208
  Serious: Yes (Hospitalization, Other)
  Sender: FDA-Public Use
  Company Number: US-AMGEN-STX189280

PATIENT
  Sex: Female
  Weight: 79 kg

DRUGS (9)
  1. ENBREL [Suspect]
     Indication: RHEUMATOID ARTHRITIS
     Route: 058
     Dates: start: 19990501
  2. WARFARIN SODIUM [Suspect]
     Dates: start: 20050401, end: 20051001
  3. AMBIEN [Concomitant]
  4. CARISOPRODOL [Concomitant]
  5. CLONAZEPAM [Concomitant]
  6. CYMBALTA [Concomitant]
  7. NORVASC [Concomitant]
  8. PROTONIX [Concomitant]
  9. QUINAPRIL [Concomitant]

REACTIONS (9)
  - CONDITION AGGRAVATED [None]
  - FALL [None]
  - HAEMORRHAGIC STROKE [None]
  - HEAD INJURY [None]
  - PULMONARY EMBOLISM [None]
  - PULMONARY THROMBOSIS [None]
  - RHEUMATOID ARTHRITIS [None]
  - THROMBOSIS [None]
  - VENOUS THROMBOSIS LIMB [None]
